FAERS Safety Report 8157849-1 (Version None)
Quarter: 2012Q1

REPORT INFORMATION
  Report Type: 
  Country: None (occurrence: None)
  Receive Date: 20120222
  Receipt Date: 20120216
  Transmission Date: 20120608
  Serious: Yes (Hospitalization, Congenital Anomaly, Other)
  Sender: FDA-Public Use
  Company Number: US-PFIZER INC-2011159814

PATIENT
  Sex: Male
  Weight: 2.6 kg

DRUGS (3)
  1. ZOLOFT [Suspect]
     Dosage: 50 MG, 1X/DAY
     Route: 064
     Dates: start: 20060830
  2. MULTI-VITAMINS [Concomitant]
     Dosage: ONE ON MORNING
     Route: 064
     Dates: start: 20070426
  3. AMBIEN [Concomitant]
     Indication: SLEEP DISORDER
     Dosage: 10 MG, PRO RE NATA
     Route: 064
     Dates: start: 20070419

REACTIONS (9)
  - ATRIAL SEPTAL DEFECT [None]
  - TACHYPNOEA [None]
  - VENTRICULAR HYPERTROPHY [None]
  - PULMONARY CONGESTION [None]
  - HEPATOMEGALY [None]
  - COR TRIATRIATUM [None]
  - MATERNAL EXPOSURE TIMING UNSPECIFIED [None]
  - RESPIRATORY DISTRESS [None]
  - PULMONARY HYPERTENSION [None]
